FAERS Safety Report 11261754 (Version 1)
Quarter: 2015Q3

REPORT INFORMATION
  Report Type: Spontaneous
  Country: US (occurrence: US)
  Receive Date: 20150710
  Receipt Date: 20150710
  Transmission Date: 20151125
  Serious: No
  Sender: FDA-Public Use
  Company Number: US-PFIZER INC-2015227696

PATIENT
  Age: 57 Year
  Sex: Female
  Weight: 97.51 kg

DRUGS (6)
  1. XELJANZ [Suspect]
     Active Substance: TOFACITINIB CITRATE
     Indication: RHEUMATOID ARTHRITIS
     Dosage: 5 MG, BID
     Route: 048
     Dates: end: 201503
  2. NEXIUM [Concomitant]
     Active Substance: ESOMEPRAZOLE MAGNESIUM
  3. AMILORIDE [Concomitant]
     Active Substance: AMILORIDE
  4. PREDNISONE. [Concomitant]
     Active Substance: PREDNISONE
  5. VALSARTAN. [Concomitant]
     Active Substance: VALSARTAN
  6. ATENOLOL. [Concomitant]
     Active Substance: ATENOLOL

REACTIONS (1)
  - Blood count abnormal [Unknown]
